FAERS Safety Report 19370637 (Version 1)
Quarter: 2021Q2

REPORT INFORMATION
  Report Type: Spontaneous
  Country: US (occurrence: US)
  Receive Date: 20210604
  Receipt Date: 20210604
  Transmission Date: 20210717
  Serious: No
  Sender: FDA-Public Use
  Company Number: US-SCIEGENPHARMA-2021SCISPO00452

PATIENT
  Age: 30 Year
  Sex: Female
  Weight: 72.57 kg

DRUGS (2)
  1. GABAPENTIN TABLETS [Suspect]
     Active Substance: GABAPENTIN
     Indication: NEURALGIA
     Route: 048
  2. OXYBUTYNIN. [Concomitant]
     Active Substance: OXYBUTYNIN CHLORIDE
     Indication: HYPERTONIC BLADDER
     Route: 048

REACTIONS (4)
  - Pain [Not Recovered/Not Resolved]
  - Drug ineffective for unapproved indication [Unknown]
  - Gait disturbance [Not Recovered/Not Resolved]
  - Product substitution issue [Unknown]
